FAERS Safety Report 7266557-0 (Version None)
Quarter: 2011Q1

REPORT INFORMATION
  Report Type: 
  Country: None (occurrence: None)
  Receive Date: 20110131
  Receipt Date: 20110117
  Transmission Date: 20110831
  Serious: Yes (Other)
  Sender: FDA-Public Use
  Company Number: DE-GENENTECH-309933

PATIENT
  Sex: Female

DRUGS (1)
  1. LUCENTIS [Suspect]
     Indication: MACULAR DEGENERATION
     Dosage: UNK
     Route: 031
     Dates: start: 20101025

REACTIONS (5)
  - HYPERSENSITIVITY [None]
  - HYPERTENSIVE CRISIS [None]
  - NAUSEA [None]
  - MALAISE [None]
  - TREMOR [None]
